FAERS Safety Report 19443960 (Version 2)
Quarter: 2021Q3

REPORT INFORMATION
  Report Type: Spontaneous
  Country: DE (occurrence: DE)
  Receive Date: 20210621
  Receipt Date: 20210824
  Transmission Date: 20211014
  Serious: Yes (Hospitalization, Other)
  Sender: FDA-Public Use
  Company Number: DE-BRISTOL-MYERS SQUIBB COMPANY-BMS-2021-056519

PATIENT
  Age: 80 Year
  Sex: Male
  Weight: 80 kg

DRUGS (9)
  1. OREN [IBUPROFEN] [Concomitant]
     Indication: PRODUCT USED FOR UNKNOWN INDICATION
     Dosage: 5 MG TABLETS, 1 TABLET IN THE MORNING AND EVENING
     Route: 065
  2. DIFLUCAN [Concomitant]
     Active Substance: FLUCONAZOLE
     Indication: PRODUCT USED FOR UNKNOWN INDICATION
     Dosage: ONCE A WEEK, 100 OR 200 MG
     Route: 065
  3. VIGANTOLETTEN [Concomitant]
     Active Substance: CHOLECALCIFEROL
     Indication: PRODUCT USED FOR UNKNOWN INDICATION
     Dosage: UNK
     Route: 065
  4. LITALIR [Suspect]
     Active Substance: HYDROXYUREA
     Dosage: 400 MILLIGRAM
     Route: 048
  5. ARTELAC [HYPROMELLOSE] [Concomitant]
     Active Substance: HYPROMELLOSES
     Indication: PRODUCT USED FOR UNKNOWN INDICATION
     Dosage: BOTH EYES, IN THE MORNING, MIDDAY AND EVENING
     Route: 065
  6. LITALIR [Suspect]
     Active Substance: HYDROXYUREA
     Indication: ESSENTIAL THROMBOCYTHAEMIA
     Dosage: 500 MILLIGRAM, BID
     Route: 048
     Dates: start: 2003
  7. APIXABAN [Concomitant]
     Active Substance: APIXABAN
     Indication: ATRIAL FIBRILLATION
     Dosage: 2.5 MG, 1 TABLET IN THE MORNING AND EVENING
     Route: 048
  8. METOPROLOL. [Concomitant]
     Active Substance: METOPROLOL
     Indication: PRODUCT USED FOR UNKNOWN INDICATION
     Dosage: 95 MG TABLETS, HALF A TABLET IN THE MORNING AND EVENING
     Route: 065
  9. ADENURIC [Concomitant]
     Active Substance: FEBUXOSTAT
     Indication: PRODUCT USED FOR UNKNOWN INDICATION
     Dosage: 40 MG TABLETS, 1 TABLET IN THE MORNING AND EVENING
     Route: 065

REACTIONS (3)
  - Subacute cutaneous lupus erythematosus [Not Recovered/Not Resolved]
  - Pulmonary fibrosis [Not Recovered/Not Resolved]
  - Cutaneous vasculitis [Not Recovered/Not Resolved]

NARRATIVE: CASE EVENT DATE: 202012
